FAERS Safety Report 6089559-9 (Version None)
Quarter: 2009Q1

REPORT INFORMATION
  Report Type: 
  Country: None (occurrence: None)
  Receive Date: 20090224
  Receipt Date: 20090219
  Transmission Date: 20090719
  Serious: Yes (Life-Threatening)
  Sender: FDA-Public Use
  Company Number: IN-SANOFI-SYNTHELABO-D01200901274

PATIENT

DRUGS (10)
  1. CLOPIDOGREL [Suspect]
     Indication: ACUTE CORONARY SYNDROME
     Dosage: 600 MG LD D1 FOLLOWED BY 150 MG FROM D2 TO D7; 75 MG FROM D8 TO 30
     Route: 048
  2. CLOPIDOGREL [Suspect]
     Indication: ACUTE CORONARY SYNDROME
     Dosage: 300 MG (+PLACEBO) D1 FOLLOWED BY 75 MG (+PLACEBO) D2 TO D7; 75 MG FROM D8 TO 30
     Route: 048
  3. ASA HIGH DOSE [Concomitant]
     Indication: ACUTE CORONARY SYNDROME
     Dosage: AT LEAST 300 MG D1; 300-325 MG FROM D2 TO D30
     Route: 048
  4. HEPARIN [Concomitant]
  5. EPTIFIBATIDE [Concomitant]
  6. ENOXAPARIN SODIUM [Concomitant]
  7. ASA LOW DOSE [Concomitant]
     Indication: ACUTE CORONARY SYNDROME
     Dosage: AT LEAST 300 MG D1; 75-100 MG FROM D2 TO D30
     Route: 048
     Dates: end: 20090216
  8. ASA LOW DOSE [Concomitant]
     Route: 048
     Dates: start: 20090217
  9. ATORVASTATIN [Concomitant]
  10. CILOSTAZOL [Concomitant]

REACTIONS (1)
  - CARDIAC TAMPONADE [None]
